FAERS Safety Report 6655705-9 (Version None)
Quarter: 2010Q1

REPORT INFORMATION
  Report Type: 
  Country: None (occurrence: None)
  Receive Date: 20100329
  Receipt Date: 20100316
  Transmission Date: 20100710
  Serious: Yes (Hospitalization, Other)
  Sender: FDA-Public Use
  Company Number: JP-ROCHE-500614

PATIENT
  Sex: Female

DRUGS (20)
  1. KYTRIL [Suspect]
     Indication: DRUG USE FOR UNKNOWN INDICATION
     Route: 048
     Dates: start: 20040917, end: 20050518
  2. TRASTUZUMAB [Suspect]
     Indication: BREAST CANCER METASTATIC
     Dosage: LOADING DOSE, 4MG/KG AS PER PROTOCOL
     Route: 041
     Dates: start: 20040915, end: 20040915
  3. TRASTUZUMAB [Suspect]
     Dosage: MAINTENANCE DOSE, 2MG/KG AS PER PROTOCOL
     Route: 041
     Dates: start: 20040921, end: 20080630
  4. TRASTUZUMAB [Suspect]
     Route: 041
     Dates: start: 20080724, end: 20080724
  5. TRASTUZUMAB [Suspect]
     Route: 041
     Dates: start: 20080811, end: 20091207
  6. KYTRIL [Suspect]
     Dosage: NOTE: UNCERTAINTY
     Route: 041
     Dates: start: 20040916, end: 20050613
  7. TAXOTERE [Suspect]
     Indication: BREAST CANCER METASTATIC
     Route: 041
     Dates: start: 20040916, end: 20050613
  8. MECOBALAMIN [Concomitant]
     Dosage: NOTE: UNCERTAINTY
     Route: 048
     Dates: end: 20080704
  9. FURULMINE [Concomitant]
     Dosage: NOTE: UNCERTAINTY
     Route: 048
     Dates: end: 20080704
  10. CYANOCOBALAMIN [Concomitant]
     Dosage: NOTE: UNCERTAINTY, DOSE FORM: INFUSION
     Route: 040
     Dates: end: 20041008
  11. PROCAINE HYDROCHLORIDE INJ [Concomitant]
     Dosage: NOTE: UNCERTAINTY, DOSE FORM: INFUSION
     Route: 040
     Dates: end: 20041008
  12. VOLTAREN [Concomitant]
     Dosage: NOTE: UNCERTAINTY
     Route: 054
     Dates: start: 20040915, end: 20040915
  13. DECADRON [Concomitant]
     Dosage: NOTE: UNCERTAINTY
     Route: 050
     Dates: start: 20040916, end: 20050613
  14. PROTECADIN [Concomitant]
     Dosage: NOTE: UNCERTAINTY
     Route: 048
     Dates: start: 20050214, end: 20050522
  15. ALLOID G [Concomitant]
     Dosage: DOSE FORM: PERORAL LIQUID PREPARATION, NOTE: UNCERTAINTY
     Route: 048
     Dates: start: 20060729, end: 20060729
  16. MUCOSTA [Concomitant]
     Route: 048
     Dates: start: 20050822, end: 20050903
  17. SELBEX [Concomitant]
     Dosage: NOTE: UNCERTAINTY, DOSE FORM: MINUTE GRAIN
     Route: 048
     Dates: start: 20071227, end: 20080103
  18. METHAPHYLLIN [Concomitant]
     Route: 048
     Dates: start: 20071227, end: 20080103
  19. DECADRON [Concomitant]
     Route: 048
     Dates: start: 20040916, end: 20050518
  20. MEPIVACAINE HCL [Concomitant]
     Route: 061
     Dates: start: 20070323, end: 20070529

REACTIONS (57)
  - ALANINE AMINOTRANSFERASE INCREASED [None]
  - ALOPECIA [None]
  - ARTHRALGIA [None]
  - ARTHRITIS BACTERIAL [None]
  - ASPARTATE AMINOTRANSFERASE INCREASED [None]
  - BACK PAIN [None]
  - BLOOD ALBUMIN DECREASED [None]
  - BLOOD BILIRUBIN DECREASED [None]
  - BLOOD CHOLESTEROL INCREASED [None]
  - BLOOD LACTATE DEHYDROGENASE INCREASED [None]
  - BLOOD POTASSIUM INCREASED [None]
  - BLOOD SODIUM DECREASED [None]
  - BLOOD TRIGLYCERIDES INCREASED [None]
  - BLOOD URIC ACID INCREASED [None]
  - CATARACT [None]
  - CEREBRAL ISCHAEMIA [None]
  - CHEST DISCOMFORT [None]
  - CONSTIPATION [None]
  - COUGH [None]
  - DENTAL CARIES [None]
  - DIARRHOEA [None]
  - DYSGEUSIA [None]
  - EJECTION FRACTION DECREASED [None]
  - FATIGUE [None]
  - GAMMA-GLUTAMYLTRANSFERASE INCREASED [None]
  - GASTRIC ULCER [None]
  - HAEMATOCRIT DECREASED [None]
  - HAEMOGLOBIN DECREASED [None]
  - HAEMORRHAGE SUBCUTANEOUS [None]
  - HELICOBACTER INFECTION [None]
  - HYPERTENSION [None]
  - INFECTED EPIDERMAL CYST [None]
  - INGROWING NAIL [None]
  - INSOMNIA [None]
  - MUSCULOSKELETAL CHEST PAIN [None]
  - MYALGIA [None]
  - NAIL DISORDER [None]
  - NASOPHARYNGITIS [None]
  - NAUSEA [None]
  - NEUTROPHIL COUNT DECREASED [None]
  - OEDEMA [None]
  - OSTEOARTHRITIS [None]
  - OSTEOPOROSIS [None]
  - PERIPHERAL COLDNESS [None]
  - PROTEIN TOTAL DECREASED [None]
  - PRURITUS [None]
  - RASH [None]
  - RED BLOOD CELL COUNT DECREASED [None]
  - RIB FRACTURE [None]
  - SPINAL COMPRESSION FRACTURE [None]
  - STOMATITIS [None]
  - THERMAL BURN [None]
  - TINEA INFECTION [None]
  - VERTIGO [None]
  - VOMITING [None]
  - WEIGHT DECREASED [None]
  - WHITE BLOOD CELL COUNT DECREASED [None]
